FAERS Safety Report 13229501 (Version 1)
Quarter: 2017Q1

REPORT INFORMATION
  Report Type: Spontaneous
  Country: US (occurrence: US)
  Receive Date: 20170213
  Receipt Date: 20170213
  Transmission Date: 20170428
  Serious: Yes (Life-Threatening, Disabling)
  Sender: FDA-Public Use
  Company Number: None

PATIENT
  Age: 47 Year
  Sex: Female
  Weight: 66.6 kg

DRUGS (8)
  1. SEPTOCAINE [Suspect]
     Active Substance: ARTICAINE HYDROCHLORIDE\EPINEPHRINE BITARTRATE
     Indication: DENTAL CLEANING
     Dates: start: 20170207, end: 20170207
  2. BENICAR [Concomitant]
     Active Substance: OLMESARTAN MEDOXOMIL
  3. CLOPEDIGREL [Concomitant]
  4. LYRICA [Concomitant]
     Active Substance: PREGABALIN
  5. VITAMIN B12 [Concomitant]
     Active Substance: CYANOCOBALAMIN
  6. COREG [Concomitant]
     Active Substance: CARVEDILOL
  7. AMLODIPINE [Concomitant]
     Active Substance: AMLODIPINE BESYLATE
  8. ATORVASTATIN [Concomitant]
     Active Substance: ATORVASTATIN

REACTIONS (6)
  - Paraesthesia [None]
  - Eating disorder [None]
  - Hypoaesthesia oral [None]
  - Swollen tongue [None]
  - Feeling abnormal [None]
  - Headache [None]

NARRATIVE: CASE EVENT DATE: 20170207
